FAERS Safety Report 5387083-X (Version None)
Quarter: 2007Q3

REPORT INFORMATION
  Report Type: 
  Country: None (occurrence: None)
  Receive Date: 20070710
  Receipt Date: 20070628
  Transmission Date: 20080115
  Serious: Yes (Other)
  Sender: FDA-Public Use
  Company Number: 015704

PATIENT
  Age: 79 Year
  Sex: Male

DRUGS (6)
  1. WARFARIN SODIUM(WARFARIN SODIUM) TABLET, UNK [Suspect]
     Indication: ATRIAL FIBRILLATION
  2. ECONAZOLE(ECONAZOLE) [Suspect]
     Indication: CANDIDIASIS
     Dosage: UNK, BID, TOPICAL
     Route: 061
  3. ASPIRIN [Concomitant]
  4. MULTIVITAMINS (ERGOCALCIFEROL, PANTHENOL, NICOTINAMIDE, RIBOFLAVIN, TH [Concomitant]
  5. GLUCOSAMINE (GLUCOSAMINE) [Concomitant]
  6. CHONDROITIN SULFATE (CHONDROITIN SULFATE) [Concomitant]

REACTIONS (10)
  - CANDIDIASIS [None]
  - COAGULATION TIME PROLONGED [None]
  - CONTUSION [None]
  - DRUG INTERACTION [None]
  - ECCHYMOSIS [None]
  - ERYTHEMA [None]
  - HAEMORRHAGE [None]
  - INFLAMMATION [None]
  - INJURY [None]
  - INTERNATIONAL NORMALISED RATIO INCREASED [None]
